FAERS Safety Report 12904877 (Version 1)
Quarter: 2016Q4

REPORT INFORMATION
  Report Type: Spontaneous
  Country: US (occurrence: US)
  Receive Date: 20161102
  Receipt Date: 20161102
  Transmission Date: 20170207
  Serious: No
  Sender: FDA-Public Use
  Company Number: US-ACTELION-A-NJ2011-50534

PATIENT
  Age: 54 Year
  Sex: Female

DRUGS (6)
  1. COUMADIN [Concomitant]
     Active Substance: WARFARIN SODIUM
  2. ASPIRIN. [Concomitant]
     Active Substance: ASPIRIN
  3. OXYGEN. [Concomitant]
     Active Substance: OXYGEN
  4. ADCIRCA [Concomitant]
     Active Substance: TADALAFIL
  5. VELETRI [Suspect]
     Active Substance: EPOPROSTENOL
     Indication: PULMONARY ARTERIAL HYPERTENSION
     Dosage: 18.47 NG/KG, PER MIN
     Route: 042
     Dates: start: 20110523
  6. LETAIRIS [Concomitant]
     Active Substance: AMBRISENTAN

REACTIONS (6)
  - Feeling abnormal [Unknown]
  - Dizziness [Unknown]
  - Headache [Unknown]
  - Drug ineffective [Unknown]
  - Pain in jaw [Unknown]
  - Pain in extremity [Recovered/Resolved]

NARRATIVE: CASE EVENT DATE: 20110617
